FAERS Safety Report 4455214-1 (Version None)
Quarter: 2004Q3

REPORT INFORMATION
  Report Type: 
  Country: None (occurrence: None)
  Receive Date: 20040830
  Receipt Date: 20040421
  Transmission Date: 20050211
  Serious: No
  Sender: FDA-Public Use
  Company Number: 206034

PATIENT
  Age: 41 Year
  Sex: Male

DRUGS (1)
  1. XOLAIR [Suspect]
     Dosage: Q2W

REACTIONS (2)
  - HEADACHE [None]
  - MYALGIA [None]
